FAERS Safety Report 13541667 (Version 1)
Quarter: 2017Q2

REPORT INFORMATION
  Report Type: Spontaneous
  Country: PS (occurrence: PS)
  Receive Date: 20170512
  Receipt Date: 20170512
  Transmission Date: 20170830
  Serious: Yes (Other)
  Sender: FDA-Public Use
  Company Number: PS-JNJFOC-20170510633

PATIENT
  Age: 2 Year
  Sex: Male

DRUGS (3)
  1. REMICADE [Suspect]
     Active Substance: INFLIXIMAB
     Indication: CROHN^S DISEASE
     Dosage: 2ND DOSE
     Route: 042
  2. REMICADE [Suspect]
     Active Substance: INFLIXIMAB
     Indication: CROHN^S DISEASE
     Route: 042
  3. REMICADE [Suspect]
     Active Substance: INFLIXIMAB
     Indication: CROHN^S DISEASE
     Dosage: 1ST DOSE
     Route: 042

REACTIONS (7)
  - Infusion related reaction [Unknown]
  - Chest discomfort [Unknown]
  - Hypoxia [Unknown]
  - Hyperthermia [Unknown]
  - Bronchospasm [Unknown]
  - Off label use [Unknown]
  - Product use issue [Unknown]
